FAERS Safety Report 7559716-0 (Version None)
Quarter: 2011Q2

REPORT INFORMATION
  Report Type: 
  Country: None (occurrence: None)
  Receive Date: 20110621
  Receipt Date: 20110607
  Transmission Date: 20111010
  Serious: Yes (Life-Threatening)
  Sender: FDA-Public Use
  Company Number: FR-ROCHE-776819

PATIENT
  Sex: Male
  Weight: 68 kg

DRUGS (11)
  1. ALIMTA [Concomitant]
     Dates: start: 20110324, end: 20110325
  2. CISPLATIN [Concomitant]
     Route: 065
     Dates: start: 20110302, end: 20110303
  3. CISPLATIN [Concomitant]
     Route: 065
     Dates: start: 20110324, end: 20110325
  4. ONDANSERTRON HYDROCHLORIDE [Concomitant]
     Dates: start: 20110324, end: 20110325
  5. METHYLPREDNISOLONE [Suspect]
     Indication: PREMEDICATION
     Dosage: FREQUENCY ONE INTAKE
     Route: 042
     Dates: start: 20110426, end: 20110426
  6. FOLIC ACID [Concomitant]
     Dates: start: 20110324, end: 20110325
  7. PREDNISONE [Concomitant]
     Dosage: ON DAY1, DAY2 AND DAY3
     Route: 065
     Dates: start: 20110324, end: 20110325
  8. EMEND [Concomitant]
     Dosage: DOSE, FREQUENCY AND FORM NOT PROVIDED
     Route: 065
     Dates: start: 20110324, end: 20110325
  9. AVASTIN [Suspect]
     Indication: BRONCHIOLOALVEOLAR CARCINOMA
     Dosage: FREQUENCY ACCORDING TO THE CYCLE
     Route: 042
     Dates: start: 20110303, end: 20110325
  10. ALIMTA [Concomitant]
     Dates: start: 20110302, end: 20110303
  11. CARBOPLATIN [Concomitant]
     Route: 065
     Dates: start: 20110426

REACTIONS (1)
  - AORTIC DISSECTION [None]
